FAERS Safety Report 10710428 (Version 1)
Quarter: 2015Q1

REPORT INFORMATION
  Report Type: Spontaneous
  Country: JP (occurrence: JP)
  Receive Date: 20150114
  Receipt Date: 20150114
  Transmission Date: 20150721
  Serious: Yes (Other)
  Sender: FDA-Public Use
  Company Number: JP-ROXANE LABORATORIES, INC.-2014-BI-59789GD

PATIENT
  Age: 1 Day
  Weight: 2.46 kg

DRUGS (3)
  1. PROPRANOLOL [Suspect]
     Active Substance: PROPRANOLOL\PROPRANOLOL HYDROCHLORIDE
     Indication: EXPOSURE DURING PREGNANCY
     Route: 064
  2. MEXILETINE [Suspect]
     Active Substance: MEXILETINE
     Indication: EXPOSURE DURING PREGNANCY
     Route: 064
  3. AMIODARONE [Suspect]
     Active Substance: AMIODARONE
     Indication: EXPOSURE DURING PREGNANCY
     Route: 064

REACTIONS (9)
  - Circulatory failure neonatal [Unknown]
  - Hypotension [Unknown]
  - Acute kidney injury [Unknown]
  - Foetal arrhythmia [Recovered/Resolved]
  - Bradycardia neonatal [Unknown]
  - Premature baby [Unknown]
  - Apgar score low [Unknown]
  - Low birth weight baby [Unknown]
  - Metabolic acidosis [Unknown]
